FAERS Safety Report 7999512-3 (Version None)
Quarter: 2011Q4

REPORT INFORMATION
  Report Type: 
  Country: None (occurrence: None)
  Receive Date: 20111221
  Receipt Date: 20111215
  Transmission Date: 20120403
  Serious: No
  Sender: FDA-Public Use
  Company Number: US-PFIZER INC-2011306468

PATIENT
  Sex: Female
  Weight: 81.6 kg

DRUGS (4)
  1. AROMASIN [Suspect]
     Indication: BREAST CANCER
     Dosage: 25 MG, DAILY
     Dates: start: 20110101
  2. SYNTHROID [Concomitant]
     Indication: HYPOTHYROIDISM
     Dosage: UNK
  3. HYDROCHLOROTHIAZIDE [Concomitant]
     Indication: DIURETIC THERAPY
     Dosage: 50 MG, DAILY
  4. VENLAFAXINE HYDROCHLORIDE [Concomitant]
     Dosage: 75 MG, DAILY

REACTIONS (1)
  - COUGH [None]
